FAERS Safety Report 12364435 (Version 1)
Quarter: 2016Q2

REPORT INFORMATION
  Report Type: Spontaneous
  Country: US (occurrence: None)
  Receive Date: 20160512
  Receipt Date: 20160512
  Transmission Date: 20160815
  Serious: Yes (Hospitalization)
  Sender: FDA-Public Use
  Company Number: None

PATIENT
  Age: 71 Year
  Sex: Male
  Weight: 74.4 kg

DRUGS (9)
  1. OMEPRAZOLE. [Concomitant]
     Active Substance: OMEPRAZOLE
  2. SIMETHICONE (DIMETHICONE) [Concomitant]
     Active Substance: DIMETHICONE
  3. PREDNISONE. [Concomitant]
     Active Substance: PREDNISONE
  4. SPIRIVA [Concomitant]
     Active Substance: TIOTROPIUM BROMIDE MONOHYDRATE
  5. METOPROLOL. [Concomitant]
     Active Substance: METOPROLOL
  6. BENDAMUSTINE HYDROCHLORIDE. [Suspect]
     Active Substance: BENDAMUSTINE HYDROCHLORIDE
     Dates: end: 20160404
  7. ASPIRIN. [Concomitant]
     Active Substance: ASPIRIN
  8. ALBUTEROL. [Concomitant]
     Active Substance: ALBUTEROL
  9. FLOMAX [Concomitant]
     Active Substance: TAMSULOSIN HYDROCHLORIDE

REACTIONS (3)
  - Babesiosis [None]
  - Disease recurrence [None]
  - Pyrexia [None]

NARRATIVE: CASE EVENT DATE: 20160420
